FAERS Safety Report 17533316 (Version 1)
Quarter: 2020Q1

REPORT INFORMATION
  Report Type: Spontaneous
  Country: US (occurrence: US)
  Receive Date: 20200311
  Receipt Date: 20200311
  Transmission Date: 20200409
  Serious: No
  Sender: FDA-Public Use
  Company Number: None

PATIENT
  Age: 29 Year
  Sex: Female
  Weight: 81.65 kg

DRUGS (1)
  1. PARAGARD T 380A [Suspect]
     Active Substance: COPPER

REACTIONS (5)
  - Pain [None]
  - Menorrhagia [None]
  - Muscle spasms [None]
  - Dysgeusia [None]
  - Device use issue [None]

NARRATIVE: CASE EVENT DATE: 20200228
